FAERS Safety Report 13846401 (Version 1)
Quarter: 2017Q3

REPORT INFORMATION
  Report Type: Spontaneous
  Country: US (occurrence: US)
  Receive Date: 20170808
  Receipt Date: 20170808
  Transmission Date: 20171127
  Serious: No
  Sender: FDA-Public Use
  Company Number: US-ROCHE-795501

PATIENT
  Sex: Female

DRUGS (1)
  1. BONIVA [Suspect]
     Active Substance: IBANDRONATE SODIUM
     Indication: PRODUCT USED FOR UNKNOWN INDICATION
     Dosage: STRENGTH: 150, UNIT NOT REPORTED
     Route: 065

REACTIONS (4)
  - Rash [Recovered/Resolved]
  - Breast tenderness [Unknown]
  - Pruritus [Recovered/Resolved]
  - Diarrhoea [Unknown]
